FAERS Safety Report 11378913 (Version 1)
Quarter: 2015Q3

REPORT INFORMATION
  Report Type: Spontaneous
  Country: US (occurrence: US)
  Receive Date: 20150811
  Receipt Date: 20150811
  Transmission Date: 20151125
  Serious: No
  Sender: FDA-Public Use
  Company Number: US-ELI_LILLY_AND_COMPANY-US200803001389

PATIENT
  Sex: Male

DRUGS (3)
  1. PERCOCET [Concomitant]
     Active Substance: ACETAMINOPHEN\OXYCODONE HYDROCHLORIDE
  2. CIALIS [Suspect]
     Active Substance: TADALAFIL
     Dosage: 20 MG, UNK
     Dates: start: 20080306
  3. XANAX [Concomitant]
     Active Substance: ALPRAZOLAM

REACTIONS (3)
  - Abdominal discomfort [Not Recovered/Not Resolved]
  - Dry mouth [Not Recovered/Not Resolved]
  - Drug ineffective [Not Recovered/Not Resolved]

NARRATIVE: CASE EVENT DATE: 20080306
